FAERS Safety Report 12544172 (Version 1)
Quarter: 2016Q3

REPORT INFORMATION
  Report Type: Spontaneous
  Country: US (occurrence: US)
  Receive Date: 20160711
  Receipt Date: 20160711
  Transmission Date: 20161109
  Serious: Yes (Other)
  Sender: FDA-Public Use
  Company Number: US-BAUSCH-BL-2016-015323

PATIENT
  Age: 71 Year
  Sex: Female

DRUGS (2)
  1. ENTECAVIR. [Concomitant]
     Active Substance: ENTECAVIR
     Indication: PRODUCT USED FOR UNKNOWN INDICATION
  2. MYSOLINE [Suspect]
     Active Substance: PRIMIDONE
     Indication: SEIZURE
     Route: 048
     Dates: start: 20130403

REACTIONS (2)
  - Myocardial infarction [Unknown]
  - Unevaluable event [Unknown]

NARRATIVE: CASE EVENT DATE: 20160418
